FAERS Safety Report 10446956 (Version 2)
Quarter: 2014Q4

REPORT INFORMATION
  Report Type: Spontaneous
  Country: US (occurrence: US)
  Receive Date: 20140911
  Receipt Date: 20141021
  Transmission Date: 20150528
  Serious: Yes (Other)
  Sender: FDA-Public Use
  Company Number: US-PFIZER INC-2014250204

PATIENT
  Age: 81 Year
  Sex: Female

DRUGS (6)
  1. SIMVASTATIN. [Concomitant]
     Active Substance: SIMVASTATIN
     Dosage: 20 MG, UNK
  2. RISPERIDONE. [Concomitant]
     Active Substance: RISPERIDONE
     Dosage: 4.5-6 MG, PER DAY
     Route: 048
  3. DIAZEPAM. [Concomitant]
     Active Substance: DIAZEPAM
     Dosage: 5 MG, DAILY
  4. RISPERIDONE. [Concomitant]
     Active Substance: RISPERIDONE
     Dosage: 1 MG, DAILY
     Route: 048
  5. SERTRALINE HCL [Suspect]
     Active Substance: SERTRALINE HYDROCHLORIDE
     Indication: ADJUSTMENT DISORDER
     Dosage: 100 MG, DAILY
  6. VALSARTAN. [Concomitant]
     Active Substance: VALSARTAN
     Dosage: 150 MG, UNK

REACTIONS (2)
  - Psychotic disorder [Recovered/Resolved]
  - Toxicity to various agents [Recovered/Resolved]
